FAERS Safety Report 7747502-8 (Version None)
Quarter: 2011Q3

REPORT INFORMATION
  Report Type: 
  Country: None (occurrence: None)
  Receive Date: 20110913
  Receipt Date: 20110905
  Transmission Date: 20111222
  Serious: Yes (Hospitalization)
  Sender: FDA-Public Use
  Company Number: AT-CEPHALON-2011003492

PATIENT
  Sex: Male

DRUGS (3)
  1. TREANDA [Suspect]
     Indication: LYMPHOMA
     Route: 042
     Dates: start: 20080821, end: 20080920
  2. RITUXIMAB [Concomitant]
     Indication: LYMPHOMA
     Dates: start: 20080821, end: 20080920
  3. RITUXIMAB [Concomitant]
     Dates: start: 20100428, end: 20100622

REACTIONS (1)
  - INTERSTITIAL LUNG DISEASE [None]
